FAERS Safety Report 24529934 (Version 1)
Quarter: 2024Q4

REPORT INFORMATION
  Report Type: Spontaneous
  Country: US (occurrence: US)
  Receive Date: 20241021
  Receipt Date: 20241021
  Transmission Date: 20250115
  Serious: Yes (Hospitalization)
  Sender: NORDIC PHARMA
  Company Number: US-MLMSERVICE-20240923-PI203871-00271-1

PATIENT
  Age: 48 Year
  Sex: Male

DRUGS (2)
  1. METHOTREXATE [Suspect]
     Active Substance: METHOTREXATE
     Indication: Sarcoidosis
     Dosage: CHRONIC USE
  2. PREDNISONE [Concomitant]
     Active Substance: PREDNISONE
     Indication: Sarcoidosis
     Dosage: CHRONIC USE

REACTIONS (4)
  - Tracheal stenosis [Unknown]
  - Tracheitis [Recovering/Resolving]
  - Histoplasmosis [Recovering/Resolving]
  - Product use in unapproved indication [Unknown]
